FAERS Safety Report 10051260 (Version 2)
Quarter: 2014Q2

REPORT INFORMATION
  Report Type: Spontaneous
  Country: IT (occurrence: IT)
  Receive Date: 20140401
  Receipt Date: 20140415
  Transmission Date: 20141212
  Serious: Yes (Life-Threatening)
  Sender: FDA-Public Use
  Company Number: IT-BAXTER-2014BAX015463

PATIENT
  Age: 70 Year
  Sex: Male

DRUGS (3)
  1. METRONIDAZOLO BAXTER 0,5% [Suspect]
     Indication: PRODUCT USED FOR UNKNOWN INDICATION
     Route: 042
     Dates: start: 20140317, end: 20140317
  2. SIRTAP [Suspect]
     Indication: ANTIBIOTIC PROPHYLAXIS
     Route: 042
     Dates: start: 20140317, end: 20140317
  3. FENTANEST                          /00174601/ [Suspect]
     Indication: PRODUCT USED FOR UNKNOWN INDICATION
     Route: 042
     Dates: start: 20140317, end: 20140317

REACTIONS (1)
  - Anaphylactic shock [Recovered/Resolved]
